FAERS Safety Report 8717944 (Version 3)
Quarter: 2015Q4

REPORT INFORMATION
  Report Type: Report from Study
  Country: GB (occurrence: GB)
  Receive Date: 20120810
  Receipt Date: 20151116
  Transmission Date: 20160305
  Serious: Yes (Hospitalization, Other)
  Sender: FDA-Public Use
  Company Number: GB-ROCHE-1099623

PATIENT
  Age: 41 Year
  Sex: Female
  Weight: 145 kg

DRUGS (6)
  1. CLOTRIMAZOLE 1% CREME [Concomitant]
     Dosage: 1X20G
     Route: 061
  2. KETOCONAZOLE. [Concomitant]
     Active Substance: KETOCONAZOLE
  3. CALCICHEW D3 FORTE [Concomitant]
     Active Substance: CALCIUM\CHOLECALCIFEROL
  4. HAELAN [Concomitant]
     Dosage: WHEN REQUIRED
     Route: 061
  5. TOCILIZUMAB [Suspect]
     Active Substance: TOCILIZUMAB
     Indication: RHEUMATOID ARTHRITIS
     Dosage: ON 04/JUL/2011, LAST DOSE PRIOR TO SAE
     Route: 042
     Dates: start: 20110331
  6. METHOTREXATE [Concomitant]
     Active Substance: METHOTREXATE

REACTIONS (14)
  - Rheumatoid arthritis [Unknown]
  - Electric shock [Unknown]
  - Hypoaesthesia [Recovered/Resolved]
  - Back pain [Unknown]
  - Scoliosis [Unknown]
  - Arthralgia [Not Recovered/Not Resolved]
  - Urinary incontinence [Unknown]
  - Muscular weakness [Unknown]
  - Arthralgia [Unknown]
  - Intervertebral disc degeneration [Unknown]
  - Blood potassium decreased [Unknown]
  - Fibromyalgia [Unknown]
  - Neck pain [Not Recovered/Not Resolved]
  - Dysuria [Not Recovered/Not Resolved]

NARRATIVE: CASE EVENT DATE: 20110915
